FAERS Safety Report 14467243 (Version 4)
Quarter: 2018Q1

REPORT INFORMATION
  Report Type: Spontaneous
  Country: SE (occurrence: SE)
  Receive Date: 20180131
  Receipt Date: 20180221
  Transmission Date: 20180509
  Serious: Yes (Other)
  Sender: FDA-Public Use
  Company Number: SE-ASTRAZENECA-2018SE11450

PATIENT
  Age: 56 Year
  Sex: Male

DRUGS (30)
  1. NITROGLYCERIN. [Concomitant]
     Active Substance: NITROGLYCERIN
     Dates: start: 20171206, end: 20171206
  2. NATRIUMKLORID [Concomitant]
     Dates: start: 20171206, end: 20171206
  3. ESOMEPRAZOLE [Concomitant]
     Active Substance: ESOMEPRAZOLE
     Dates: start: 20171206, end: 20171206
  4. OXASCAND [Concomitant]
     Active Substance: OXAZEPAM
     Dates: start: 20171207
  5. RINGER-ACETAT [Concomitant]
     Dates: start: 20171207, end: 20171210
  6. MIDAZOLAM [Concomitant]
     Active Substance: MIDAZOLAM HYDROCHLORIDE
     Dates: start: 20171208, end: 20171209
  7. RAMIPRIL. [Concomitant]
     Active Substance: RAMIPRIL
     Dates: start: 20171208, end: 20171208
  8. KLEXANE [Concomitant]
     Active Substance: ENOXAPARIN
  9. NATRIUMKLORID [Concomitant]
     Dates: start: 20171209, end: 20171210
  10. NORADRENALINE [Concomitant]
     Active Substance: NOREPINEPHRINE
     Dates: start: 20171206, end: 20171206
  11. VISIPAQUE [Concomitant]
     Active Substance: IODIXANOL
     Dates: start: 20171206, end: 20171206
  12. ISOPRENALINE [Concomitant]
     Active Substance: ISOPROTERENOL HYDROCHLORIDE
     Dates: start: 20171208, end: 20171208
  13. NATRIUMKLORID [Concomitant]
     Dates: start: 20171207, end: 20171208
  14. INTEGRILIN [Concomitant]
     Active Substance: EPTIFIBATIDE
     Dates: start: 20171208, end: 20171209
  15. NATRIUMKLORID [Concomitant]
     Dates: start: 20171213, end: 20171213
  16. INTEGRILIN [Concomitant]
     Active Substance: EPTIFIBATIDE
     Dates: start: 20171208, end: 20171209
  17. BRILIQUE [Suspect]
     Active Substance: TICAGRELOR
     Route: 048
     Dates: start: 20171206, end: 20171213
  18. NATRIUMKLORID [Concomitant]
     Dates: start: 20171208, end: 20171208
  19. HEPARIN [Concomitant]
     Active Substance: HEPARIN SODIUM
     Dosage: 5000 IE/ML
     Dates: start: 20171206, end: 20171206
  20. PRIMPERAN [Concomitant]
     Active Substance: METOCLOPRAMIDE HYDROCHLORIDE
     Dates: start: 20171206, end: 20171206
  21. INTEGRILIN [Concomitant]
     Active Substance: EPTIFIBATIDE
     Dates: start: 20171207
  22. GLYTRIN [Concomitant]
     Dates: start: 20171208, end: 20171208
  23. XYLOCAINE [Concomitant]
     Active Substance: LIDOCAINE HYDROCHLORIDE
     Dates: start: 20171206, end: 20171206
  24. ALVEDON [Concomitant]
     Active Substance: ACETAMINOPHEN
  25. KALEORID [Concomitant]
     Active Substance: POTASSIUM CHLORIDE
     Dates: start: 20171208, end: 20171208
  26. VISIPAQUE [Concomitant]
     Active Substance: IODIXANOL
     Dates: start: 20171208, end: 20171208
  27. TROMBYL [Concomitant]
     Active Substance: ASPIRIN
     Dates: start: 20170207
  28. XYLOCAINE [Concomitant]
     Active Substance: LIDOCAINE HYDROCHLORIDE
     Dates: start: 20171208, end: 20171208
  29. GLUCOS [Concomitant]
     Dates: start: 20171206, end: 20171206
  30. ATORVASTATIN [Concomitant]
     Active Substance: ATORVASTATIN
     Dates: start: 20171207

REACTIONS (9)
  - Haematemesis [Unknown]
  - Drug ineffective [Unknown]
  - Vascular stent thrombosis [Unknown]
  - Cardiac arrest [Unknown]
  - Myocardial infarction [Unknown]
  - Ventricular tachycardia [Unknown]
  - Bradycardia [Unknown]
  - Coronary artery restenosis [Unknown]
  - Blood pressure abnormal [Unknown]

NARRATIVE: CASE EVENT DATE: 201712
